FAERS Safety Report 9454597 (Version 3)
Quarter: 2013Q4

REPORT INFORMATION
  Report Type: Spontaneous
  Country: US (occurrence: US)
  Receive Date: 20130812
  Receipt Date: 20131017
  Transmission Date: 20140711
  Serious: Yes (Hospitalization, Disabling, Other)
  Sender: FDA-Public Use
  Company Number: US-CELGENEUS-163-21880-13080673

PATIENT
  Age: 71 Year
  Sex: Female
  Weight: 87.62 kg

DRUGS (20)
  1. REVLIMID [Suspect]
     Indication: PLASMA CELL MYELOMA
     Dosage: 25 MILLIGRAM
     Route: 048
     Dates: start: 20101102
  2. REVLIMID [Suspect]
     Dosage: 10 MG - 15 MG
     Route: 048
     Dates: start: 201012
  3. REVLIMID [Suspect]
     Dosage: 15 MILLIGRAM
     Route: 048
     Dates: start: 201111, end: 20111202
  4. MELPHALAN [Concomitant]
     Indication: PRODUCT USED FOR UNKNOWN INDICATION
     Route: 065
     Dates: start: 20111202, end: 20120417
  5. PREDNISONE [Concomitant]
     Indication: PRODUCT USED FOR UNKNOWN INDICATION
     Dosage: 5 MILLIGRAM
     Route: 048
     Dates: start: 20111202, end: 20120417
  6. PREDNISONE [Concomitant]
     Dosage: 5 MILLIGRAM
     Route: 065
  7. DEXAMETHASONE [Concomitant]
     Indication: PRODUCT USED FOR UNKNOWN INDICATION
     Dosage: 20 MILLIGRAM
  8. ACETAMINOPHEN [Concomitant]
     Indication: PAIN
     Route: 048
  9. ACETAMINOPHEN [Concomitant]
     Indication: PYREXIA
  10. ASPIRIN [Concomitant]
     Indication: PRODUCT USED FOR UNKNOWN INDICATION
     Dosage: 81 MILLIGRAM
     Route: 048
  11. LODOSORB [Concomitant]
     Indication: PRODUCT USED FOR UNKNOWN INDICATION
     Dosage: .9 PERCENT
     Route: 061
  12. MACRODANTIN [Concomitant]
     Indication: INFECTION PROPHYLAXIS
     Dosage: 50 MILLIGRAM
     Route: 048
  13. METOPROLOL SUCCINATE [Concomitant]
     Indication: BLOOD PRESSURE
     Dosage: 25 MILLIGRAM
     Route: 048
  14. SYMBICORT [Concomitant]
     Indication: PRODUCT USED FOR UNKNOWN INDICATION
     Dosage: 80-4.5 MCG
     Route: 055
  15. TRIAMTERENE/HYDROCHLOROTHIAZIDE [Concomitant]
     Indication: FLUID RETENTION
     Dosage: 37.5-25 MG
     Route: 048
  16. VENTOLIN HFA [Concomitant]
     Indication: PRODUCT USED FOR UNKNOWN INDICATION
     Route: 055
  17. VICOPROFEN [Concomitant]
     Indication: PAIN
     Dosage: 7.5 - 200 MG
     Route: 048
  18. HYDROCODONE-ACETAMINOPHEN [Concomitant]
     Indication: PAIN
     Dosage: 7.5 - 325 MG
     Route: 048
  19. KLOR-CON [Concomitant]
     Indication: PRODUCT USED FOR UNKNOWN INDICATION
     Route: 065
  20. BORTEZOMIB [Concomitant]
     Indication: PRODUCT USED FOR UNKNOWN INDICATION
     Route: 065

REACTIONS (2)
  - Neuropathy peripheral [Unknown]
  - Lobar pneumonia [Recovered/Resolved]
